FAERS Safety Report 8481856-2 (Version None)
Quarter: 2012Q3

REPORT INFORMATION
  Report Type: 
  Country: None (occurrence: None)
  Receive Date: 20120702
  Receipt Date: 20120626
  Transmission Date: 20120928
  Serious: Yes (Other)
  Sender: FDA-Public Use
  Company Number: CH-PFIZER INC-2012153221

PATIENT
  Age: 68 Year
  Sex: Male
  Weight: 94 kg

DRUGS (6)
  1. PERNADOL [Suspect]
     Dosage: 400 MG, TWICE PER 3 DAYS
     Route: 048
     Dates: start: 20111001, end: 20111031
  2. NEBIVOLOL HCL [Concomitant]
     Dosage: 5 MG, 1X/DAY
     Route: 048
  3. ASPIRIN [Concomitant]
     Dosage: 100 MG, 1X/DAY
     Route: 048
  4. ATORVASTATIN CALCIUM [Suspect]
     Dosage: 40 MG, 1X/DAY
     Route: 048
     Dates: start: 20060101
  5. METFORMIN HCL [Concomitant]
     Dosage: 850 MG, 2X/DAY
     Route: 048
     Dates: start: 20010101
  6. ENALAPRIL MALEATE AND HYDROCHLOROTHIAZIDE [Concomitant]
     Dosage: UNK
     Route: 048
     Dates: start: 20050101

REACTIONS (1)
  - POLYMYALGIA RHEUMATICA [None]
